FAERS Safety Report 12639930 (Version 1)
Quarter: 2016Q3

REPORT INFORMATION
  Report Type: Spontaneous
  Country: US (occurrence: None)
  Receive Date: 20160809
  Receipt Date: 20160809
  Transmission Date: 20161109
  Serious: Yes (Death)
  Sender: FDA-Public Use
  Company Number: None

PATIENT
  Age: 57 Year
  Sex: Female

DRUGS (2)
  1. HYCAMTIN [Suspect]
     Active Substance: TOPOTECAN HYDROCHLORIDE
     Indication: LUNG NEOPLASM MALIGNANT
     Dosage: 3 MG QD 1-5 OF 21 DAY CYC PO
     Route: 048
     Dates: start: 20160722
  2. HYCAMTIN [Suspect]
     Active Substance: TOPOTECAN HYDROCHLORIDE
     Indication: LUNG NEOPLASM MALIGNANT
     Dosage: 0.25 MG QD 1-5 OF 21 D CYCLE PO
     Route: 048
     Dates: start: 20160722

REACTIONS (1)
  - Death [None]

NARRATIVE: CASE EVENT DATE: 20160805
